FAERS Safety Report 7331775-X (Version None)
Quarter: 2011Q1

REPORT INFORMATION
  Report Type: 
  Country: None (occurrence: None)
  Receive Date: 20110304
  Receipt Date: 20110225
  Transmission Date: 20110831
  Serious: Yes (Hospitalization)
  Sender: FDA-Public Use
  Company Number: BR-ELI_LILLY_AND_COMPANY-BR201102007401

PATIENT
  Age: 66 Year
  Sex: Female

DRUGS (21)
  1. RANITIDINE [Concomitant]
     Dates: start: 20100908
  2. ENALAPRIL [Concomitant]
     Indication: HYPERTENSION
     Dosage: UNK, UNKNOWN
     Route: 065
     Dates: start: 20100908
  3. INSULIN [Concomitant]
     Indication: DIABETES MELLITUS
     Dates: start: 20040101
  4. HYDROCHLOROTHIAZIDE [Concomitant]
     Indication: HYPERTENSION
     Dates: start: 20070101
  5. DOUBLE BLINDED THERAPY [Suspect]
     Dates: start: 20110208, end: 20110208
  6. DILTIAZEM [Concomitant]
     Indication: ARRHYTHMIA
  7. DIAZEPAM [Concomitant]
     Indication: ANXIETY
     Dates: start: 20110208, end: 20110208
  8. HEPARIN [Concomitant]
     Dates: start: 20110208, end: 20110208
  9. HYDRALAZINE [Concomitant]
     Indication: HYPERTENSION
     Dates: start: 20040101
  10. METFORMIN [Concomitant]
     Indication: DIABETES MELLITUS
     Dates: start: 20080101
  11. SIMVASTATIN [Concomitant]
     Indication: HYPERTENSION
     Dates: start: 20040101
  12. ALISKIREN [Concomitant]
     Indication: DIABETES MELLITUS
  13. METOPROLOL TARTRATE [Concomitant]
     Indication: HYPERTENSION
     Dosage: UNK, UNK
     Dates: start: 20110208, end: 20110211
  14. CLEXANE [Concomitant]
     Indication: ACUTE CORONARY SYNDROME
     Dates: start: 20110207, end: 20110211
  15. ASPIRIN [Concomitant]
     Indication: ANTIPLATELET THERAPY
     Dates: start: 20040101
  16. EZETIMIBE [Concomitant]
     Indication: DYSLIPIDAEMIA
     Dates: start: 20060101
  17. PRASUGREL HYDROCHLORIDE [Suspect]
     Dosage: 10 MG, DAILY (1/D)
     Route: 048
     Dates: start: 20110209
  18. GLICLAZIDE [Concomitant]
     Indication: DIABETES MELLITUS
     Dates: start: 20060101
  19. DOUBLE BLINDED THERAPY [Suspect]
     Dosage: UNK, UNK
     Route: 048
     Dates: start: 20110207, end: 20110207
  20. AMLODIPINE [Concomitant]
     Indication: HYPERTENSION
     Dosage: UNK, UNKNOWN
     Route: 065
  21. MONOCORDIL [Concomitant]
     Dates: start: 20061201

REACTIONS (1)
  - ACUTE MYOCARDIAL INFARCTION [None]
